FAERS Safety Report 5942227-3 (Version None)
Quarter: 2008Q4

REPORT INFORMATION
  Report Type: 
  Country: None (occurrence: None)
  Receive Date: 20081105
  Receipt Date: 20081029
  Transmission Date: 20090506
  Serious: Yes (Hospitalization)
  Sender: FDA-Public Use
  Company Number: PHHO2008US00885

PATIENT
  Sex: Female
  Weight: 93.1 kg

DRUGS (7)
  1. TASIGNA [Suspect]
     Indication: GASTROINTESTINAL STROMAL TUMOUR
     Dosage: 400 MG, BID
     Route: 048
     Dates: start: 20070726
  2. LASIX [Concomitant]
  3. LOVENOX [Concomitant]
     Indication: PULMONARY EMBOLISM
  4. IMODIUM [Concomitant]
     Indication: DIARRHOEA
  5. MORPHINE [Concomitant]
     Indication: PAIN
  6. ZOFRAN [Concomitant]
  7. COMPAZINE [Concomitant]

REACTIONS (10)
  - ABDOMINAL PAIN [None]
  - DEHYDRATION [None]
  - DIARRHOEA [None]
  - GASTROINTESTINAL TUBE INSERTION [None]
  - HYPOTENSION [None]
  - INTESTINAL OBSTRUCTION [None]
  - MALIGNANT NEOPLASM PROGRESSION [None]
  - NAUSEA [None]
  - SYNCOPE [None]
  - VOMITING [None]
